FAERS Safety Report 6537014-1 (Version None)
Quarter: 2010Q1

REPORT INFORMATION
  Report Type: 
  Country: None (occurrence: None)
  Receive Date: 20100107
  Receipt Date: 20091223
  Transmission Date: 20100710
  Serious: Yes (Hospitalization)
  Sender: FDA-Public Use
  Company Number: 1000011010

PATIENT
  Age: 50 Year
  Sex: Female

DRUGS (14)
  1. ESCITALOPRAM OXALATE [Suspect]
     Indication: DEPRESSION
     Dosage: 20 MG (20 MG, 1 IN 1 D), ORAL
     Route: 048
     Dates: start: 20090119, end: 20090124
  2. DERINOX [Suspect]
     Indication: NASAL CONGESTION
     Dosage: 3 DOSAGE FORMS (1 DOSAGE FORMS, 3 IN 1 D), NASAL
     Route: 045
     Dates: start: 20090119, end: 20090124
  3. RELPAX [Suspect]
     Indication: MIGRAINE
     Dosage: (40 MG, AS REQUIRED, ORAL)
     Route: 048
     Dates: end: 20090124
  4. FLURBIPROFEN [Suspect]
     Indication: PAIN
     Dosage: (200 MG, 5 DAYS PER MONTH), ORAL
     Route: 048
     Dates: end: 20090124
  5. EUPHON [Concomitant]
  6. CEFUROXIME [Concomitant]
  7. PARACETAMOL [Concomitant]
  8. TOPALGIC [Concomitant]
  9. SERESTA [Concomitant]
  10. HAVLANE ( [Concomitant]
  11. PROPRANOLOL [Concomitant]
  12. DEPAKOTE [Concomitant]
  13. SEROPRAM [Concomitant]
  14. PREDNISOLONE AND NAPHAZOLINE (DERINOX) [Concomitant]

REACTIONS (5)
  - CEREBRAL HAEMATOMA [None]
  - CEREBROVASCULAR ACCIDENT [None]
  - DYSURIA [None]
  - INTRACRANIAL PRESSURE INCREASED [None]
  - URINARY RETENTION [None]
